FAERS Safety Report 23699253 (Version 3)
Quarter: 2025Q3

REPORT INFORMATION
  Report Type: Spontaneous
  Country: EU (occurrence: EU)
  Receive Date: 20240402
  Receipt Date: 20250807
  Transmission Date: 20251021
  Serious: Yes (Disabling, Other)
  Sender: MERCK SHARP & DOHME LLC
  Company Number: EU-009507513-2403FRA008868

PATIENT
  Sex: Male
  Weight: 76 kg

DRUGS (1)
  1. PEMBROLIZUMAB [Suspect]
     Active Substance: PEMBROLIZUMAB
     Indication: Metastatic malignant melanoma
     Dosage: DOSE DESCRIPTION : 400 MILLIGRAM, EVERY 6 WEEKS?DAILY DOSE : 9.6 MILLIGRAM?REGIMEN DOSE : 400  MI...
     Dates: start: 202005, end: 20230703

REACTIONS (3)
  - Hypotony of eye [Unknown]
  - Macular oedema [Not Recovered/Not Resolved]
  - Ciliary body disorder [Unknown]

NARRATIVE: CASE EVENT DATE: 20210101
